FAERS Safety Report 6385737-X (Version None)
Quarter: 2009Q4

REPORT INFORMATION
  Report Type: 
  Country: None (occurrence: None)
  Receive Date: 20091002
  Receipt Date: 20080528
  Transmission Date: 20100525
  Serious: No
  Sender: FDA-Public Use
  Company Number: US-ASTRAZENECA-2008UW20762

PATIENT
  Sex: Female

DRUGS (2)
  1. ARIMIDEX [Suspect]
     Indication: UTERINE LEIOMYOMA
     Route: 048
  2. TAMOXIFEN CITRATE [Suspect]
     Indication: UTERINE LEIOMYOMA
     Route: 065

REACTIONS (1)
  - UTERINE LEIOMYOMA [None]
